FAERS Safety Report 10900180 (Version 11)
Quarter: 2015Q3

REPORT INFORMATION
  Report Type: Report from Study
  Country: FR (occurrence: FR)
  Receive Date: 20150310
  Receipt Date: 20150922
  Transmission Date: 20151125
  Serious: Yes (Life-Threatening, Hospitalization)
  Sender: FDA-Public Use
  Company Number: FR-ROCHE-1547446

PATIENT
  Age: 76 Year
  Sex: Female
  Weight: 68 kg

DRUGS (14)
  1. LAMALINE [Concomitant]
     Active Substance: ACETAMINOPHEN\CAFFEINE\OPIUM
     Route: 065
     Dates: start: 20150210, end: 20150227
  2. CERTOLIZUMAB PEGOL [Suspect]
     Active Substance: CERTOLIZUMAB PEGOL
     Indication: PRODUCT USED FOR UNKNOWN INDICATION
     Dosage: FOR 2 MONTHS
     Route: 065
     Dates: start: 201409, end: 201411
  3. TOCILIZUMAB [Suspect]
     Active Substance: TOCILIZUMAB
     Indication: RHEUMATOID ARTHRITIS
     Route: 058
     Dates: start: 20141118, end: 201502
  4. CEFPODOXIME [Concomitant]
     Active Substance: CEFPODOXIME
     Route: 065
     Dates: start: 20141125, end: 20141201
  5. AUGMENTIN [Concomitant]
     Active Substance: AMOXICILLIN\CLAVULANATE POTASSIUM
     Route: 065
     Dates: start: 20150113, end: 20150121
  6. GAVISCON (ALGINIC ACID/SODIUM BICARBONATE) [Concomitant]
     Route: 065
     Dates: start: 20150216, end: 20150309
  7. CILOXADEX [Concomitant]
     Dosage: 5 DROPS
     Route: 065
     Dates: start: 20141125, end: 20141201
  8. PARACETAMOL [Concomitant]
     Active Substance: ACETAMINOPHEN
     Route: 065
     Dates: start: 20150210, end: 20150227
  9. LAMALINE [Concomitant]
     Active Substance: ACETAMINOPHEN\CAFFEINE\OPIUM
     Route: 065
     Dates: start: 20150210, end: 20150227
  10. CLAMOXYL (AMOXICILLIN TRIHYDRATE) [Concomitant]
     Active Substance: AMOXICILLIN
     Route: 065
     Dates: start: 20141106, end: 20141114
  11. LAMALINE [Concomitant]
     Active Substance: ACETAMINOPHEN\CAFFEINE\OPIUM
     Route: 065
     Dates: start: 20150210, end: 20150227
  12. CAFEINE [Concomitant]
     Active Substance: CAFFEINE
     Route: 065
     Dates: start: 20150210, end: 20150227
  13. OFLOCET [Concomitant]
     Active Substance: OFLOXACIN
     Route: 065
     Dates: start: 20141106, end: 20141114
  14. CLAMOXIL [Concomitant]
     Route: 065
     Dates: start: 20141209, end: 20141213

REACTIONS (2)
  - Pulmonary tuberculosis [Recovering/Resolving]
  - Meningoencephalitis bacterial [Recovered/Resolved]

NARRATIVE: CASE EVENT DATE: 201502
